FAERS Safety Report 4862594-1 (Version None)
Quarter: 2005Q4

REPORT INFORMATION
  Report Type: 
  Country: None (occurrence: None)
  Receive Date: 20051219
  Receipt Date: 20051208
  Transmission Date: 20060501
  Serious: Yes (Hospitalization)
  Sender: FDA-Public Use
  Company Number: 2005BI020159

PATIENT
  Age: 44 Year
  Sex: Female

DRUGS (10)
  1. AVONEX [Suspect]
     Indication: MULTIPLE SCLEROSIS
     Dosage: 30 UG; QW; IM
     Route: 030
     Dates: start: 20051016
  2. BETASERON [Concomitant]
  3. AMITRIPTYLINE [Concomitant]
  4. OXYCODONE [Concomitant]
  5. HYDROCODONE WITH APAP [Concomitant]
  6. XANAX [Concomitant]
  7. NEURONTIN [Concomitant]
  8. FLEXERIL [Concomitant]
  9. PROZAC [Concomitant]
  10. BACLOFEN [Concomitant]

REACTIONS (4)
  - CELLULITIS [None]
  - OSTEOMYELITIS [None]
  - TOOTH ABSCESS [None]
  - WHITE BLOOD CELL COUNT DECREASED [None]
